FAERS Safety Report 4324691-9 (Version None)
Quarter: 2004Q1

REPORT INFORMATION
  Report Type: 
  Country: None (occurrence: None)
  Receive Date: 20040323
  Receipt Date: 20040311
  Transmission Date: 20041129
  Serious: Yes (Other)
  Sender: FDA-Public Use
  Company Number: HQWYE745111MAR04

PATIENT
  Age: 43 Year
  Sex: Male

DRUGS (2)
  1. CORDARONE [Suspect]
     Indication: ATRIAL FIBRILLATION
     Dosage: 200 MG 1 X PER 1 DAY
     Route: 048
  2. CORDARONE [Suspect]
     Indication: CARDIOMYOPATHY
     Dosage: 200 MG 1 X PER 1 DAY
     Route: 048

REACTIONS (4)
  - ASTHENIA [None]
  - NERVE INJURY [None]
  - NEURITIS [None]
  - PARALYSIS [None]
